FAERS Safety Report 17462369 (Version 1)
Quarter: 2020Q1

REPORT INFORMATION
  Report Type: Other
  Country: GB (occurrence: GB)
  Receive Date: 20200226
  Receipt Date: 20200226
  Transmission Date: 20200409
  Serious: Yes (Other)
  Sender: FDA-Public Use
  Company Number: GB-EMCURE PHARMACEUTICALS LTD-2020-EPL-000194

PATIENT
  Age: 83 Year

DRUGS (7)
  1. SLOW SODIUM [Concomitant]
  2. LISINOPRIL. [Suspect]
     Active Substance: LISINOPRIL
     Indication: HYPERTENSION
     Dosage: 10 MILLIGRAM PER DAY IN THE MORNING
     Route: 048
     Dates: start: 20190716, end: 20200121
  3. BISACODYL. [Concomitant]
     Active Substance: BISACODYL
  4. LACTULOSE. [Concomitant]
     Active Substance: LACTULOSE
  5. TEGRETOL [Concomitant]
     Active Substance: CARBAMAZEPINE
  6. SIMVASTATIN. [Concomitant]
     Active Substance: SIMVASTATIN
  7. LATANOPROST. [Concomitant]
     Active Substance: LATANOPROST

REACTIONS (1)
  - Dermatitis bullous [Recovering/Resolving]

NARRATIVE: CASE EVENT DATE: 20191125
